FAERS Safety Report 9284023 (Version 3)
Quarter: 2015Q1

REPORT INFORMATION
  Report Type: Spontaneous
  Country: US (occurrence: US)
  Receive Date: 20130510
  Receipt Date: 20150330
  Transmission Date: 20150721
  Serious: Yes (Hospitalization)
  Sender: FDA-Public Use
  Company Number: US-BAYER-2013-057598

PATIENT
  Age: 33 Year
  Sex: Female
  Weight: 90.7 kg

DRUGS (7)
  1. YAZ [Suspect]
     Active Substance: DROSPIRENONE\ETHINYL ESTRADIOL
     Indication: POLYCYSTIC OVARIES
     Dosage: UNK
     Route: 048
     Dates: start: 2008, end: 2008
  2. ALBUTEROL. [Concomitant]
     Active Substance: ALBUTEROL
  3. DIFLUCAN [Concomitant]
     Active Substance: FLUCONAZOLE
  4. SINGULAIR [Concomitant]
     Active Substance: MONTELUKAST SODIUM
  5. PREDNISONE. [Concomitant]
     Active Substance: PREDNISONE
  6. BIAXIN [Concomitant]
     Active Substance: CLARITHROMYCIN
  7. ADVAIR HFA [Concomitant]
     Active Substance: FLUTICASONE PROPIONATE\SALMETEROL XINAFOATE

REACTIONS (12)
  - Pulmonary embolism [Recovered/Resolved]
  - Abdominal pain [None]
  - Dyspnoea exertional [Recovered/Resolved]
  - General physical health deterioration [Recovered/Resolved]
  - Pain [None]
  - Injury [Recovered/Resolved]
  - Emotional distress [None]
  - Atypical pneumonia [None]
  - Pain [Recovered/Resolved]
  - Anxiety [None]
  - Gait disturbance [Recovered/Resolved]
  - Malaise [Recovered/Resolved]

NARRATIVE: CASE EVENT DATE: 200803
